FAERS Safety Report 5492414-6 (Version None)
Quarter: 2007Q4

REPORT INFORMATION
  Report Type: 
  Country: None (occurrence: None)
  Receive Date: 20071015
  Receipt Date: 20070813
  Transmission Date: 20080405
  Serious: No
  Sender: FDA-Public Use
  Company Number: 2007SP002827

PATIENT
  Age: 45 Year
  Sex: Female
  Weight: 54.4316 kg

DRUGS (2)
  1. LUNESTA [Suspect]
     Indication: INSOMNIA
     Dosage: 3 MG; HS; ORAL; 3 MG; 1X; ORAL
     Route: 048
     Dates: start: 20070101
  2. LUNESTA [Suspect]
     Indication: INSOMNIA
     Dosage: 3 MG; HS; ORAL; 3 MG; 1X; ORAL
     Route: 048
     Dates: start: 20070101

REACTIONS (2)
  - DYSGEUSIA [None]
  - INITIAL INSOMNIA [None]
